FAERS Safety Report 21871580 (Version 1)
Quarter: 2023Q1

REPORT INFORMATION
  Report Type: Spontaneous
  Country: IN (occurrence: IN)
  Receive Date: 20230117
  Receipt Date: 20230117
  Transmission Date: 20230418
  Serious: Yes (Other)
  Sender: FDA-Public Use
  Company Number: IN-PFIZER INC-PV202300008644

PATIENT
  Age: 63 Year
  Sex: Male

DRUGS (5)
  1. PALBOCICLIB [Suspect]
     Active Substance: PALBOCICLIB
     Dosage: 125 MG, 1X/DAY, 3 WEKS ON 1 WEEK OFF
     Route: 048
     Dates: start: 202207
  2. RIVAROXABAN [Concomitant]
     Active Substance: RIVAROXABAN
     Dosage: 20 MG, 1X/DAY, 2 MONTHS
  3. PAN [Concomitant]
     Dosage: 40 MG, 1X/DAY (2 MONTHS)
  4. ONDANSETRON HYDROCHLORIDE [Concomitant]
     Active Substance: ONDANSETRON HYDROCHLORIDE
     Indication: Vomiting
     Dosage: 4 MG, 2X/DAY, 2 MONTHS
  5. BETADINE MOUTHWASH + GARGLE [Concomitant]
     Dosage: 100 ML, 3X/DAY, 1-AFTER BREAKFAST, 1-AFTER LUNCH, 1-AFTER DINNER, 2 MONTHS

REACTIONS (3)
  - Second primary malignancy [Unknown]
  - Dedifferentiated liposarcoma [Unknown]
  - Spindle cell sarcoma [Unknown]
